FAERS Safety Report 8793631 (Version 1)
Quarter: 2012Q4

REPORT INFORMATION
  Report Type: Report from Study
  Country: ZA (occurrence: ZA)
  Receive Date: 20120917
  Receipt Date: 20120917
  Transmission Date: 20130627
  Serious: Yes (Other)
  Sender: FDA-Public Use
  Company Number: ZA-VIIV HEALTHCARE LIMITED-B0830787A

PATIENT
  Age: 3 Year
  Sex: Male

DRUGS (4)
  1. LAMIVUDINE-HIV [Suspect]
     Indication: PRODUCT USED FOR UNKNOWN INDICATION
     Route: 065
     Dates: start: 200911
  2. ATAZANAVIR [Suspect]
     Indication: HIV INFECTION
     Dosage: 300MG Per day
     Route: 048
     Dates: start: 20091104
  3. STAVUDINE [Suspect]
     Indication: PRODUCT USED FOR UNKNOWN INDICATION
     Route: 065
     Dates: start: 200911
  4. RITONAVIR [Suspect]
     Indication: HIV INFECTION
     Dosage: 65MG Per day
     Route: 048
     Dates: start: 20091104

REACTIONS (1)
  - Hyperbilirubinaemia [Unknown]
